FAERS Safety Report 21286969 (Version 1)
Quarter: 2022Q3

REPORT INFORMATION
  Report Type: Spontaneous
  Country: ES (occurrence: ES)
  Receive Date: 20220902
  Receipt Date: 20220902
  Transmission Date: 20221027
  Serious: Yes (Hospitalization)
  Sender: FDA-Public Use
  Company Number: None

PATIENT
  Age: 77 Year
  Weight: 94.3 kg

DRUGS (2)
  1. PANTOPRAZOLE [Suspect]
     Active Substance: PANTOPRAZOLE
     Indication: Prophylaxis
     Dosage: UNIT DOSE : 40 MG, FREQUENCY TIME : 12 HOURS, THERAPY DURATION : 195  DAYS
     Route: 065
     Dates: start: 20220128, end: 20220811
  2. FUROSEMIDE [Suspect]
     Active Substance: FUROSEMIDE
     Indication: Product used for unknown indication
     Dosage: UNIT DOSE : 40 MG,FREQUENCY TIME : 2  DAYS, THERAPY END DATE : NOT ASKED
     Route: 065
     Dates: start: 20210825

REACTIONS (2)
  - Hypomagnesaemia [Recovered/Resolved]
  - Hypocalcaemia [Recovered/Resolved]

NARRATIVE: CASE EVENT DATE: 20220811
